FAERS Safety Report 5135152-1 (Version None)
Quarter: 2006Q4

REPORT INFORMATION
  Report Type: 
  Country: None (occurrence: None)
  Receive Date: 20060831
  Receipt Date: 20060510
  Transmission Date: 20070319
  Serious: No
  Sender: FDA-Public Use
  Company Number: 2006-BP-05288BP

PATIENT
  Sex: Male

DRUGS (1)
  1. SPIRIVA [Suspect]
     Indication: EMPHYSEMA
     Dosage: SEE TEXT (18 MCG,18 MCG, ON AND OFF (NOT EVERYDAY)),IH
     Dates: start: 20040101

REACTIONS (1)
  - DYSPNOEA [None]
